FAERS Safety Report 12527990 (Version 1)
Quarter: 2016Q3

REPORT INFORMATION
  Report Type: Spontaneous
  Country: AU (occurrence: AU)
  Receive Date: 20160705
  Receipt Date: 20160705
  Transmission Date: 20161109
  Serious: Yes (Hospitalization, Other)
  Sender: FDA-Public Use
  Company Number: AU-TEVA-671998ISR

PATIENT
  Sex: Female

DRUGS (1)
  1. COPAXONE [Suspect]
     Active Substance: GLATIRAMER ACETATE
     Indication: RELAPSING-REMITTING MULTIPLE SCLEROSIS
     Dosage: 20 MILLIGRAM DAILY;
     Route: 058
     Dates: start: 201410, end: 2015

REACTIONS (5)
  - Acute kidney injury [Unknown]
  - Malaise [Unknown]
  - Thrombocytopenia [Unknown]
  - Microangiopathic haemolytic anaemia [Unknown]
  - Haemolytic uraemic syndrome [Unknown]
